FAERS Safety Report 8216582-8 (Version None)
Quarter: 2012Q1

REPORT INFORMATION
  Report Type: 
  Country: None (occurrence: None)
  Receive Date: 20120316
  Receipt Date: 20120307
  Transmission Date: 20120608
  Serious: Yes (Hospitalization)
  Sender: FDA-Public Use
  Company Number: NL-MEDIMMUNE-MEDI-0014585

PATIENT
  Sex: Male
  Weight: 6 kg

DRUGS (2)
  1. SYNAGIS [Suspect]
     Route: 030
     Dates: start: 20120113, end: 20120113
  2. SYNAGIS [Suspect]
     Indication: PREMATURE BABY
     Route: 030
     Dates: start: 20111019, end: 20111215

REACTIONS (13)
  - COUGH [None]
  - HYPOPNOEA [None]
  - GASTROOESOPHAGEAL REFLUX DISEASE [None]
  - CYANOSIS [None]
  - ASTHENIA [None]
  - OXYGEN SATURATION DECREASED [None]
  - ABDOMINAL PAIN [None]
  - CRYING [None]
  - DYSPNOEA [None]
  - NASOPHARYNGITIS [None]
  - RESPIRATORY RATE INCREASED [None]
  - BODY TEMPERATURE DECREASED [None]
  - FATIGUE [None]
